FAERS Safety Report 7992536-1 (Version None)
Quarter: 2011Q4

REPORT INFORMATION
  Report Type: 
  Country: None (occurrence: None)
  Receive Date: 20111219
  Receipt Date: 20111212
  Transmission Date: 20120403
  Serious: Yes (Death, Hospitalization)
  Sender: FDA-Public Use
  Company Number: US-GILEAD-2011-0047292

PATIENT
  Sex: Male

DRUGS (4)
  1. REMODULIN [Concomitant]
  2. LETAIRIS [Suspect]
     Indication: LIVER TRANSPLANT
  3. LETAIRIS [Suspect]
     Indication: PULMONARY HYPERTENSION
     Dosage: 10 MG, UNK
     Route: 048
     Dates: start: 20110623, end: 20111108
  4. LETAIRIS [Suspect]
     Indication: PORTOPULMONARY HYPERTENSION

REACTIONS (1)
  - PULMONARY ARTERIAL HYPERTENSION [None]
